FAERS Safety Report 22526677 (Version 2)
Quarter: 2023Q2

REPORT INFORMATION
  Report Type: Spontaneous
  Country: US (occurrence: US)
  Receive Date: 20230606
  Receipt Date: 20230622
  Transmission Date: 20230722
  Serious: No
  Sender: FDA-Public Use
  Company Number: US-BAUSCHBL-2023BNL004721

PATIENT
  Age: 83 Year
  Sex: Female

DRUGS (1)
  1. TOBRAMYCIN AND DEXAMETHASONE [Suspect]
     Active Substance: DEXAMETHASONE\TOBRAMYCIN
     Indication: Eye swelling
     Route: 047
     Dates: start: 20230526

REACTIONS (2)
  - Malaise [Unknown]
  - Balance disorder [Unknown]

NARRATIVE: CASE EVENT DATE: 20230526
